FAERS Safety Report 7231578-0 (Version None)
Quarter: 2011Q1

REPORT INFORMATION
  Report Type: 
  Country: None (occurrence: None)
  Receive Date: 20110107
  Receipt Date: 20101227
  Transmission Date: 20110831
  Serious: Yes (Other)
  Sender: FDA-Public Use
  Company Number: B0692178A

PATIENT
  Age: 45 Year
  Sex: Female
  Weight: 54.8852 kg

DRUGS (3)
  1. PHENOBARBITAL TAB [Suspect]
     Indication: COMPLEX PARTIAL SEIZURES
  2. LAMOTRIGINE [Suspect]
     Indication: COMPLEX PARTIAL SEIZURES
     Dosage: / ORAL
     Route: 048
  3. LEVETIRACETAM [Concomitant]

REACTIONS (4)
  - WHITE BLOOD CELL COUNT DECREASED [None]
  - COMPLEX PARTIAL SEIZURES [None]
  - PLATELET COUNT DECREASED [None]
  - DRUG INTERACTION [None]
